FAERS Safety Report 18648089 (Version 1)
Quarter: 2020Q4

REPORT INFORMATION
  Report Type: Spontaneous
  Country: AT (occurrence: AT)
  Receive Date: 20201222
  Receipt Date: 20201222
  Transmission Date: 20210114
  Serious: Yes (Other)
  Sender: FDA-Public Use
  Company Number: AT-SHILPA MEDICARE LIMITED-SML-AT-2020-00841

PATIENT
  Sex: Female

DRUGS (1)
  1. GEMCITABINE, UNKNOWN [Suspect]
     Active Substance: GEMCITABINE
     Indication: PRODUCT USED FOR UNKNOWN INDICATION
     Dosage: UNK
     Route: 065
     Dates: start: 20200907, end: 20201027

REACTIONS (2)
  - Metastases to skin [Unknown]
  - Disease progression [Unknown]

NARRATIVE: CASE EVENT DATE: 20201027
